FAERS Safety Report 12245060 (Version 4)
Quarter: 2016Q3

REPORT INFORMATION
  Report Type: Spontaneous
  Country: None (occurrence: US)
  Receive Date: 20160407
  Receipt Date: 20160720
  Transmission Date: 20161109
  Serious: Yes (Other)
  Sender: FDA-Public Use
  Company Number: US-TEVA-623421USA

PATIENT
  Sex: Female

DRUGS (1)
  1. ZECUITY [Suspect]
     Active Substance: SUMATRIPTAN SUCCINATE
     Indication: HEADACHE
     Dosage: 6.5 MG OVER 4 HOURS
     Route: 062

REACTIONS (5)
  - Application site erythema [Recovered/Resolved]
  - Application site exfoliation [Recovered/Resolved]
  - Drug ineffective [Unknown]
  - Skin reaction [Recovered/Resolved]
  - Application site pain [Recovered/Resolved]
